FAERS Safety Report 8747823 (Version 3)
Quarter: 2012Q4

REPORT INFORMATION
  Report Type: 
  Country: US (occurrence: US)
  Receive Date: 20120827
  Receipt Date: 20121003
  Transmission Date: 20130627
  Serious: No
  Sender: FDA-Public Use
  Company Number: US-009507513-1208USA006296

PATIENT
  Sex: Female
  Weight: 27.21 kg

DRUGS (4)
  1. MIRALAX [Suspect]
     Indication: PRODUCT USED FOR UNKNOWN INDICATION
     Dosage: 8.5 g, qd
     Route: 048
     Dates: start: 201205
  2. MIRALAX [Suspect]
     Indication: MEDICAL OBSERVATION
  3. NASONEX [Concomitant]
     Indication: HYPERSENSITIVITY
     Dosage: UNK, Unknown
  4. FLINTSTONES MULTIVITAMIN [Concomitant]
     Indication: PRODUCT USED FOR UNKNOWN INDICATION
     Dosage: UNK, Unknown

REACTIONS (3)
  - Anal pruritus [Not Recovered/Not Resolved]
  - Drug administered to patient of inappropriate age [Unknown]
  - Off label use [Unknown]
